FAERS Safety Report 18606702 (Version 1)
Quarter: 2020Q4

REPORT INFORMATION
  Report Type: Spontaneous
  Country: CN (occurrence: CN)
  Receive Date: 20201211
  Receipt Date: 20201211
  Transmission Date: 20210114
  Serious: Yes (Hospitalization)
  Sender: FDA-Public Use
  Company Number: CN-ELI_LILLY_AND_COMPANY-CN202012000952

PATIENT
  Sex: Female

DRUGS (5)
  1. METFORMIN HYDROCHLORIDE. [Concomitant]
     Active Substance: METFORMIN HYDROCHLORIDE
     Dosage: 0.5 G, BID (AFTER MEALS IN THE MORNING AND EVENING)
     Route: 048
     Dates: start: 20201124, end: 20201130
  2. HUMALOG MIX75/25 [Suspect]
     Active Substance: INSULIN LISPRO
     Dosage: 10 U, BID (BEFORE BREAKFAST AND BEFORE DINNER)
     Route: 058
     Dates: start: 20201124
  3. HUMALOG MIX75/25 [Suspect]
     Active Substance: INSULIN LISPRO
     Indication: DIABETES MELLITUS
     Dosage: 12 U, EACH MORNING
     Route: 058
  4. HUMALOG MIX75/25 [Suspect]
     Active Substance: INSULIN LISPRO
     Dosage: 12 U, EACH EVENING
     Route: 058
  5. METFORMIN HYDROCHLORIDE. [Concomitant]
     Active Substance: METFORMIN HYDROCHLORIDE
     Indication: DIABETES MELLITUS
     Dosage: 0.5 G, BID (AFTER MEALS IN THE MORNING AND EVENING)
     Route: 048

REACTIONS (2)
  - Hypoglycaemia [Unknown]
  - Diabetes mellitus inadequate control [Recovering/Resolving]
